FAERS Safety Report 5982060-X (Version None)
Quarter: 2008Q4

REPORT INFORMATION
  Report Type: 
  Country: None (occurrence: None)
  Receive Date: 20081202
  Receipt Date: 20081121
  Transmission Date: 20090506
  Serious: Yes (Life-Threatening, Hospitalization)
  Sender: FDA-Public Use
  Company Number: 20085875

PATIENT
  Sex: Female

DRUGS (3)
  1. LIORESAL [Suspect]
     Indication: MUSCLE SPASTICITY
     Dosage: MCG, DAILY, INTRATHECAL
     Route: 037
  2. MORPHINE [Concomitant]
  3. CLONIDINE [Concomitant]

REACTIONS (5)
  - COMA [None]
  - DYSPNOEA [None]
  - LOSS OF CONSCIOUSNESS [None]
  - OVERDOSE [None]
  - PARALYSIS [None]
